FAERS Safety Report 7835451-6 (Version None)
Quarter: 2011Q4

REPORT INFORMATION
  Report Type: 
  Country: None (occurrence: None)
  Receive Date: 20111024
  Receipt Date: 20111013
  Transmission Date: 20120403
  Serious: Yes (Other)
  Sender: FDA-Public Use
  Company Number: US-ASTRAZENECA-2011SE31231

PATIENT
  Age: 44 Year
  Sex: Male

DRUGS (18)
  1. MAG 125 [Concomitant]
  2. METOPROLOL TARTRATE [Concomitant]
     Route: 048
  3. NIACIN [Concomitant]
     Route: 048
  4. CENTRUM SILVER [Concomitant]
     Dosage: 1 TAB THERAPEUTIC MULTIPLE VITAMINS WITH MINERALS ORALLY ONCE A DAY
     Route: 048
  5. ASPIRIN [Concomitant]
  6. BENAZEPRIL HYDROCHLORIDE [Concomitant]
     Route: 048
  7. BYETTA [Concomitant]
     Dosage: 10 MCG/0.04 ML 10 MCG TWO TIMES A DAY
     Route: 058
  8. CRESTOR [Suspect]
     Indication: DYSLIPIDAEMIA
     Dosage: 40 MG HALF TABLET, AT NIGHT
     Route: 048
  9. LOVAZA [Concomitant]
     Dosage: 1200, 4 TABLETS TWICE A DAY
  10. FUROSEMIDE [Concomitant]
     Route: 048
  11. HYDRALAZINE HCL [Concomitant]
     Route: 048
  12. CARVEDILOL [Concomitant]
     Route: 048
  13. GLIPIZIDE [Concomitant]
  14. CRESTOR [Suspect]
     Route: 048
  15. BENAZEPRIL HYDROCHLORIDE [Concomitant]
     Route: 048
  16. LOVAZA [Concomitant]
     Dosage: 2 TAB AM 1 TAB PM 1000MG
  17. CENTRUM SILVER [Concomitant]
     Route: 048
  18. LANTUS [Concomitant]
     Dosage: 100 UNITS/ ML 20 UNITS SUBCUTANEOUSLY ONCE A DAY AT BED TIME
     Route: 058

REACTIONS (6)
  - RENAL FAILURE CHRONIC [None]
  - DIABETIC NEPHROPATHY [None]
  - PROTEINURIA [None]
  - WRONG TECHNIQUE IN DRUG USAGE PROCESS [None]
  - TYPE 2 DIABETES MELLITUS [None]
  - HYPERTENSION [None]
